FAERS Safety Report 5376961-3 (Version None)
Quarter: 2007Q3

REPORT INFORMATION
  Report Type: 
  Country: None (occurrence: None)
  Receive Date: 20070703
  Receipt Date: 20070622
  Transmission Date: 20080115
  Serious: Yes (Other)
  Sender: FDA-Public Use
  Company Number: BR-JNJFOC-20070606014

PATIENT
  Age: 53 Year
  Sex: Female
  Weight: 52 kg

DRUGS (3)
  1. ACETAMINOPHEN W/ CODEINE [Suspect]
     Indication: PANIC DISORDER
     Route: 048
  2. RIVOTRIL [Concomitant]
     Indication: PANIC DISORDER
     Dosage: MORNING:0.25MG; AFTERNOON: 4MG; NIGHT 0.25MG
     Route: 065
  3. PONDERA [Concomitant]
     Indication: PANIC DISORDER
     Route: 048

REACTIONS (6)
  - DIZZINESS [None]
  - HYPERHIDROSIS [None]
  - OFF LABEL USE [None]
  - THROAT TIGHTNESS [None]
  - TREMOR [None]
  - VISUAL DISTURBANCE [None]
